FAERS Safety Report 17566886 (Version 2)
Quarter: 2020Q3

REPORT INFORMATION
  Report Type: Spontaneous
  Country: DE (occurrence: DE)
  Receive Date: 20200320
  Receipt Date: 20200803
  Transmission Date: 20201102
  Serious: Yes (Hospitalization, Other)
  Sender: FDA-Public Use
  Company Number: DE-SA-2020SA068791

PATIENT

DRUGS (2)
  1. DUPIXENT [Suspect]
     Active Substance: DUPILUMAB
     Dosage: 300 MG, QOW
     Route: 051
  2. DUPIXENT [Suspect]
     Active Substance: DUPILUMAB
     Indication: DERMATITIS ATOPIC
     Dosage: 300 MG, QOW
     Route: 051
     Dates: start: 20190717, end: 20200311

REACTIONS (9)
  - Cough [Unknown]
  - Heart rate increased [Unknown]
  - Chest discomfort [Unknown]
  - Unevaluable event [Unknown]
  - Extrasystoles [Recovered/Resolved]
  - Arrhythmia [Unknown]
  - Condition aggravated [Unknown]
  - Paraesthesia [Unknown]
  - Eosinophil count increased [Unknown]

NARRATIVE: CASE EVENT DATE: 202002
